FAERS Safety Report 17666028 (Version 1)
Quarter: 2020Q2

REPORT INFORMATION
  Report Type: Report from Study
  Country: ES (occurrence: ES)
  Receive Date: 20200414
  Receipt Date: 20200414
  Transmission Date: 20200713
  Serious: Yes (Hospitalization)
  Sender: FDA-Public Use
  Company Number: ES-ASTRAZENECA-2020SE49171

PATIENT
  Age: 66 Year
  Sex: Male

DRUGS (6)
  1. DAXAS [Suspect]
     Active Substance: ROFLUMILAST
     Indication: CHRONIC OBSTRUCTIVE PULMONARY DISEASE
     Dosage: 500UG/INHAL DAILY
     Route: 048
     Dates: start: 20131008, end: 20180115
  2. LOSARTAN. [Concomitant]
     Active Substance: LOSARTAN
     Indication: HYPERTENSION
     Route: 048
     Dates: start: 20121019
  3. ACETYLSALICYLIC ACID [Interacting]
     Active Substance: ASPIRIN
     Indication: LACUNAR INFARCTION
     Route: 048
     Dates: start: 20091028, end: 20180115
  4. DILTIAZEM HIDROCLORURO [Concomitant]
     Indication: HYPERTENSION
     Route: 048
     Dates: start: 20140220, end: 20180115
  5. RILAST [Concomitant]
     Active Substance: BUDESONIDE\FORMOTEROL
     Indication: CHRONIC OBSTRUCTIVE PULMONARY DISEASE
     Dosage: 740UG/INHAL DAILY
     Route: 055
     Dates: start: 20120709
  6. SALBUTAMOL [Concomitant]
     Active Substance: ALBUTEROL
     Indication: CHRONIC OBSTRUCTIVE PULMONARY DISEASE
     Dosage: 100UG/INHAL DAILY
     Route: 055
     Dates: start: 20101029

REACTIONS (1)
  - Upper gastrointestinal haemorrhage [Recovered/Resolved]

NARRATIVE: CASE EVENT DATE: 20180113
